FAERS Safety Report 17520829 (Version 1)
Quarter: 2020Q1

REPORT INFORMATION
  Report Type: Spontaneous
  Country: US (occurrence: US)
  Receive Date: 20200302
  Receipt Date: 20200302
  Transmission Date: 20200409
  Serious: No
  Sender: FDA-Public Use
  Company Number: None

PATIENT
  Age: 75 Year
  Sex: Male
  Weight: 90 kg

DRUGS (1)
  1. CEFTAZIDIME (CEFTAZIDIME 1GM/BAG INJ) [Suspect]
     Active Substance: CEFTAZIDIME
     Route: 042
     Dates: start: 20191027, end: 20191027

REACTIONS (1)
  - Rash [None]

NARRATIVE: CASE EVENT DATE: 20191027
